FAERS Safety Report 12721876 (Version 4)
Quarter: 2017Q1

REPORT INFORMATION
  Report Type: Report from Study
  Country: US (occurrence: US)
  Receive Date: 20160907
  Receipt Date: 20170215
  Transmission Date: 20170428
  Serious: Yes (Hospitalization)
  Sender: FDA-Public Use
  Company Number: US-PFIZER INC-2016409285

PATIENT
  Age: 60 Year
  Sex: Female
  Weight: 83 kg

DRUGS (13)
  1. CLADRIBINE. [Concomitant]
     Active Substance: CLADRIBINE
     Dosage: UNK
  2. PROPRANOLOL [Concomitant]
     Active Substance: PROPRANOLOL HYDROCHLORIDE
     Dosage: UNK
     Dates: start: 20060101
  3. SIMVASTATIN. [Concomitant]
     Active Substance: SIMVASTATIN
     Dosage: UNK
     Dates: start: 20120101
  4. LORAZEPAM. [Concomitant]
     Active Substance: LORAZEPAM
     Dosage: UNK
     Dates: start: 2010, end: 2011
  5. AMITRIPTYLINE [Concomitant]
     Active Substance: AMITRIPTYLINE
     Dosage: UNK
     Dates: start: 20060101
  6. CYTARABINE. [Concomitant]
     Active Substance: CYTARABINE
     Dosage: UNK
  7. PENICILLIN V POTASSIUM. [Concomitant]
     Active Substance: PENICILLIN V POTASSIUM
     Dosage: 250 MG, UNK
     Dates: start: 20160627
  8. ACYCLOVIR. [Concomitant]
     Active Substance: ACYCLOVIR
     Dosage: UNK
     Dates: start: 20160301
  9. NYSTATIN. [Concomitant]
     Active Substance: NYSTATIN
     Dosage: UNK
     Route: 048
     Dates: start: 20160614
  10. VANCOMYCIN HCL [Suspect]
     Active Substance: VANCOMYCIN HYDROCHLORIDE
     Indication: CELLULITIS
     Dosage: UNK
     Route: 042
     Dates: start: 20160724, end: 20160728
  11. ASP2215 [Suspect]
     Active Substance: GILTERITINIB
     Indication: ACUTE MYELOID LEUKAEMIA
     Dosage: 120 MG, 1X/DAY (ONCE DAILY)
     Route: 048
     Dates: start: 20160608
  12. VITAMIN D3 [Concomitant]
     Active Substance: CHOLECALCIFEROL
     Dosage: UNK
     Dates: start: 20140101
  13. OXYCODONE [Concomitant]
     Active Substance: OXYCODONE
     Dosage: 5 MG, UNK
     Dates: start: 20160608

REACTIONS (3)
  - Cellulitis [Recovered/Resolved]
  - Skin infection [Recovered/Resolved]
  - Face oedema [Recovered/Resolved]

NARRATIVE: CASE EVENT DATE: 20160724
